FAERS Safety Report 25613451 (Version 2)
Quarter: 2025Q3

REPORT INFORMATION
  Report Type: Spontaneous
  Country: US (occurrence: US)
  Receive Date: 20250728
  Receipt Date: 20250911
  Transmission Date: 20251021
  Serious: No
  Sender: MYLAN
  Company Number: US-MYLANLABS-2025M1059776

PATIENT
  Age: 71 Year
  Sex: Female
  Weight: 57.15 kg

DRUGS (15)
  1. BREYNA [Suspect]
     Active Substance: BUDESONIDE\FORMOTEROL FUMARATE
     Indication: Lung disorder
     Dosage: 320/9 MICROGRAM BID (TWICE A DAY) (2 PUFFS IN AM AND 2 PUFFS AT PM)
     Dates: start: 20250612
  2. BREYNA [Suspect]
     Active Substance: BUDESONIDE\FORMOTEROL FUMARATE
     Indication: Dyspnoea
     Dosage: 320/9 MICROGRAM BID (TWICE A DAY)
     Dates: start: 20250708
  3. VALSARTAN [Concomitant]
     Active Substance: VALSARTAN
     Indication: Thyroidectomy
  4. HYDROCHLOROTHIAZIDE [Concomitant]
     Active Substance: HYDROCHLOROTHIAZIDE
  5. TIROSINT [Concomitant]
     Active Substance: LEVOTHYROXINE SODIUM
     Indication: Autoimmune thyroiditis
  6. TIROSINT [Concomitant]
     Active Substance: LEVOTHYROXINE SODIUM
     Indication: Hyperthyroidism
  7. FAMOTIDINE [Concomitant]
     Active Substance: FAMOTIDINE
     Indication: Histamine intolerance
     Dosage: 20 MILLIGRAM, QD (PER DAY)
  8. CYTOMEL [Concomitant]
     Active Substance: LIOTHYRONINE SODIUM
     Indication: Hyperthyroidism
  9. CYTOMEL [Concomitant]
     Active Substance: LIOTHYRONINE SODIUM
     Indication: Autoimmune thyroiditis
  10. VITAMIN B [Concomitant]
     Active Substance: VITAMIN B
  11. VITAMIN C [Concomitant]
     Active Substance: ASCORBIC ACID
  12. VITAMIN D [Concomitant]
     Active Substance: VITAMIN D NOS
  13. VITAMIN E [Concomitant]
     Active Substance: .ALPHA.-TOCOPHEROL
  14. CALCIUM [Concomitant]
     Active Substance: CALCIUM
  15. Diamine oxidase [Concomitant]
     Indication: Histamine level

REACTIONS (5)
  - Dyspnoea [Unknown]
  - Off label use [Unknown]
  - Drug ineffective [Unknown]
  - Product packaging quantity issue [Unknown]
  - Product quality issue [Unknown]

NARRATIVE: CASE EVENT DATE: 20250612
